FAERS Safety Report 10600130 (Version 1)
Quarter: 2014Q4

REPORT INFORMATION
  Report Type: Spontaneous
  Country: DE (occurrence: DE)
  Receive Date: 20141122
  Receipt Date: 20141122
  Transmission Date: 20150529
  Serious: Yes (Other)
  Sender: FDA-Public Use
  Company Number: DE-DRREDDYS-GER/GER/14/0044498

PATIENT
  Age: 33 Year
  Sex: Female
  Weight: 97 kg

DRUGS (13)
  1. METHYLDOPA. [Suspect]
     Active Substance: METHYLDOPA
     Indication: RENAL HYPERTENSION
     Route: 048
     Dates: start: 20130702, end: 20140114
  2. PARTUSISTEN [Concomitant]
     Active Substance: FENOTEROL
     Indication: TOCOLYSIS
     Route: 042
     Dates: start: 20140114, end: 20140114
  3. BETAMETHASONE [Concomitant]
     Active Substance: BETAMETHASONE
     Indication: MATERNAL THERAPY TO ENHANCE FOETAL LUNG MATURITY
     Route: 065
  4. AMPICILLIN [Concomitant]
     Active Substance: AMPICILLIN
     Indication: ANTIBIOTIC PROPHYLAXIS
     Route: 065
     Dates: start: 20140114, end: 20140114
  5. AZATHIOPRINE. [Suspect]
     Active Substance: AZATHIOPRINE
     Indication: PROPHYLAXIS AGAINST TRANSPLANT REJECTION
     Route: 048
     Dates: start: 20130702, end: 20140114
  6. METOPROLOL [Suspect]
     Active Substance: METOPROLOL
     Indication: RENAL HYPERTENSION
     Route: 048
     Dates: start: 20130702, end: 20131217
  7. AMLODIPINE [Concomitant]
     Active Substance: AMLODIPINE BESYLATE
     Indication: RENAL HYPERTENSION
     Route: 048
  8. DAS GESUNDE PLUS - FOLSAURE 600 [Concomitant]
     Indication: PROPHYLAXIS OF NEURAL TUBE DEFECT
     Route: 048
     Dates: start: 20130702, end: 20131217
  9. PROGRAF [Suspect]
     Active Substance: TACROLIMUS\TACROLIMUS ANHYDROUS
     Indication: PROPHYLAXIS AGAINST TRANSPLANT REJECTION
     Route: 048
     Dates: start: 20130702, end: 20140114
  10. L-THYROXIN 25 HENNING [Concomitant]
     Indication: HYPOTHYROIDISM
     Route: 048
     Dates: start: 20130702, end: 20140114
  11. DEKRISTOL 20000 I.E. [Concomitant]
     Indication: VITAMIN SUPPLEMENTATION
     Route: 048
     Dates: start: 20130702, end: 20131217
  12. ADALAT [Concomitant]
     Active Substance: NIFEDIPINE
     Indication: TOCOLYSIS
     Route: 042
  13. BELOC-ZOK MITE [Concomitant]
     Active Substance: METOPROLOL SUCCINATE
     Indication: RENAL HYPERTENSION
     Route: 048
     Dates: start: 20140114, end: 20140114

REACTIONS (6)
  - Caesarean section [Unknown]
  - Cervical incompetence [Unknown]
  - Premature labour [Unknown]
  - Polyhydramnios [Recovered/Resolved]
  - Preterm premature rupture of membranes [Unknown]
  - Exposure during pregnancy [Unknown]
